FAERS Safety Report 16728327 (Version 2)
Quarter: 2019Q4

REPORT INFORMATION
  Report Type: Spontaneous
  Country: US (occurrence: US)
  Receive Date: 20190822
  Receipt Date: 20191011
  Transmission Date: 20200122
  Serious: Yes (Life-Threatening, Hospitalization, Other)
  Sender: FDA-Public Use
  Company Number: US-HIKMA PHARMACEUTICALS USA INC.-US-H14001-19-46636

PATIENT
  Age: 3 Year
  Sex: Female
  Weight: 13.5 kg

DRUGS (7)
  1. FENTANYL. [Suspect]
     Active Substance: FENTANYL
     Indication: SEDATION
     Dosage: ON DAY 0 0.5 MG/KG
     Route: 040
  2. FENTANYL. [Suspect]
     Active Substance: FENTANYL
     Indication: ANALGESIC THERAPY
     Route: 065
  3. FENTANYL. [Suspect]
     Active Substance: FENTANYL
     Dosage: ON DAY 1 1 MG/KG
     Route: 040
  4. FENTANYL. [Suspect]
     Active Substance: FENTANYL
     Route: 065
  5. HYDROMORPHONE [Suspect]
     Active Substance: HYDROMORPHONE
     Indication: PRODUCT USED FOR UNKNOWN INDICATION
     Dosage: INGESTION
     Route: 048
  6. DIHYDROCODEINE [Suspect]
     Active Substance: DIHYDROCODEINE
     Indication: PRODUCT USED FOR UNKNOWN INDICATION
     Dosage: INGESTION
     Route: 048
  7. HYDROCODONE [Suspect]
     Active Substance: HYDROCODONE
     Indication: PRODUCT USED FOR UNKNOWN INDICATION
     Dosage: INGESTION
     Route: 048

REACTIONS (12)
  - Brain oedema [Recovered/Resolved]
  - Accidental exposure to product [Recovered/Resolved]
  - Condition aggravated [Recovered/Resolved]
  - Intracranial pressure increased [Recovered/Resolved]
  - Bradycardia [Recovered/Resolved]
  - Dilatation ventricular [Recovered/Resolved]
  - Brain herniation [Recovered/Resolved]
  - Neurotoxicity [Recovered/Resolved]
  - Toxicity to various agents [Recovered/Resolved]
  - Toxic leukoencephalopathy [Recovered/Resolved]
  - Hypertension [Recovered/Resolved]
  - Hydrocephalus [Recovered/Resolved]
